FAERS Safety Report 4348168-X (Version None)
Quarter: 2004Q2

REPORT INFORMATION
  Report Type: 
  Country: None (occurrence: None)
  Receive Date: 20040422
  Receipt Date: 20040408
  Transmission Date: 20050107
  Serious: Yes (Other)
  Sender: FDA-Public Use
  Company Number: PHFR2004IE00800

PATIENT
  Age: 55 Year
  Sex: Male

DRUGS (9)
  1. CLOZARIL [Suspect]
     Indication: SCHIZOPHRENIA
     Dosage: 550MG/DAY ORAL
     Route: 048
     Dates: start: 19930715
  2. PHENYTOIN [Concomitant]
  3. RAMIPRIL [Concomitant]
  4. FUROSEMIDE [Concomitant]
  5. VENLAFAXINE (VENLAFAXINE) [Concomitant]
  6. OMEPRAZOLE [Concomitant]
  7. KWELLS [Concomitant]
  8. ASPIRIN [Concomitant]
  9. ATORVASTATIN [Concomitant]

REACTIONS (6)
  - CARDIAC FAILURE CONGESTIVE [None]
  - CONVULSION [None]
  - DRUG LEVEL DECREASED [None]
  - ECG SIGNS OF MYOCARDIAL ISCHAEMIA [None]
  - PLEURAL EFFUSION [None]
  - VENTRICULAR FAILURE [None]
